FAERS Safety Report 20716637 (Version 1)
Quarter: 2022Q2

REPORT INFORMATION
  Report Type: Report from Study
  Country: US (occurrence: US)
  Receive Date: 20220416
  Receipt Date: 20220416
  Transmission Date: 20220721
  Serious: Yes (Other)
  Sender: FDA-Public Use
  Company Number: US-UCBSA-2022020089

PATIENT
  Age: 50 Year
  Sex: Female

DRUGS (1)
  1. BRIVARACETAM [Suspect]
     Active Substance: BRIVARACETAM
     Indication: Seizure
     Dosage: 100 MILLIGRAM, 2X/DAY (BID)

REACTIONS (4)
  - Aneurysm [Not Recovered/Not Resolved]
  - Aneurysm repair [Not Recovered/Not Resolved]
  - Cyst [Not Recovered/Not Resolved]
  - Cyst removal [Not Recovered/Not Resolved]

NARRATIVE: CASE EVENT DATE: 20211018
